FAERS Safety Report 9995436 (Version 1)
Quarter: 2014Q1

REPORT INFORMATION
  Report Type: Spontaneous
  Country: US (occurrence: None)
  Receive Date: 20140218
  Receipt Date: 20140218
  Transmission Date: 20141002
  Serious: No
  Sender: FDA-Public Use
  Company Number: 1000050716

PATIENT
  Age: 82 Year
  Sex: Female

DRUGS (9)
  1. VIIBRYD [Suspect]
     Indication: DEPRESSION
     Route: 048
     Dates: start: 20131030, end: 20131030
  2. LISINOPRIL (LISINOPRIL) (LISINOPRIL) [Concomitant]
  3. KLOR CON (POTASSIUM CHLORIDE) (POTASSIUM CHLORIDE) [Concomitant]
  4. NORVASC (AMLODIPINE BEASILATE) (AMLODIPINE BESILATE) [Concomitant]
  5. METOPROLOL (METOPROLOL) (METOPROLOL) [Concomitant]
  6. SIMVASTATIN (SIMVASTATIN) (SIMVASTATIN) [Concomitant]
  7. LIBRAX (CHLORDIAZEPOXIDE, CLIDINIUM) (CHLORDIAZEPOXIDE, CLIDINIUM) [Concomitant]
  8. XANAX (ALPRAZOLAM) (ALPRAZOLAM) [Concomitant]
  9. VICODIN (HYDROCODONE BITARTRATE, ACETOMINOPHEN) (HYDROCODONE BITARTRATE, ACETOMINOPHEN) [Concomitant]

REACTIONS (7)
  - Feeling jittery [None]
  - Tremor [None]
  - Hyperhidrosis [None]
  - Diarrhoea [None]
  - Dizziness [None]
  - Dry mouth [None]
  - Nausea [None]
